FAERS Safety Report 7418094-8 (Version None)
Quarter: 2011Q2

REPORT INFORMATION
  Report Type: 
  Country: None (occurrence: None)
  Receive Date: 20110415
  Receipt Date: 20110404
  Transmission Date: 20111010
  Serious: Yes (Other)
  Sender: FDA-Public Use
  Company Number: US-ELI_LILLY_AND_COMPANY-US201104002194

PATIENT
  Age: 42 Year
  Sex: Female

DRUGS (10)
  1. PHENYTOIN [Concomitant]
     Dosage: UNK, UNKNOWN
     Route: 065
  2. TRAZODONE [Concomitant]
     Dosage: UNK, UNKNOWN
     Route: 065
  3. CELEXA [Concomitant]
     Dosage: UNK, UNKNOWN
     Route: 065
  4. FENTANYL [Concomitant]
     Dosage: UNK, UNKNOWN
     Route: 065
  5. NEURONTIN [Concomitant]
     Dosage: UNK, UNKNOWN
     Route: 065
  6. PREDNISONE [Concomitant]
     Dosage: UNK, UNKNOWN
     Route: 065
  7. FORTEO [Suspect]
     Dosage: 20 UG, QD
     Route: 065
  8. VERAPAMIL [Concomitant]
     Dosage: UNK, UNKNOWN
     Route: 065
  9. CELLCEPT [Concomitant]
     Dosage: UNK, UNKNOWN
     Route: 065
  10. OXYCODONE [Concomitant]
     Dosage: UNK, UNKNOWN
     Route: 065

REACTIONS (2)
  - CEREBROVASCULAR ACCIDENT [None]
  - CONVULSION [None]
